FAERS Safety Report 8273831-8 (Version None)
Quarter: 2012Q2

REPORT INFORMATION
  Report Type: 
  Country: None (occurrence: None)
  Receive Date: 20120411
  Receipt Date: 20120404
  Transmission Date: 20120825
  Serious: Yes (Death, Other)
  Sender: FDA-Public Use
  Company Number: JP-SANOFI-AVENTIS-2012SA012677

PATIENT
  Age: 73 Year
  Sex: Male

DRUGS (14)
  1. CEFAZOLIN [Concomitant]
     Indication: INFECTION PROPHYLAXIS
  2. PLAVIX [Suspect]
     Route: 048
     Dates: start: 20120119, end: 20120131
  3. ASPIRIN [Concomitant]
     Indication: ACUTE MYOCARDIAL INFARCTION
     Route: 048
     Dates: start: 20120118, end: 20120209
  4. HEPARIN [Concomitant]
     Indication: MYOCARDIAL INFARCTION
  5. ASPIRIN [Concomitant]
     Route: 048
     Dates: start: 20120118, end: 20120209
  6. LANSOPRAZOLE [Concomitant]
     Route: 048
     Dates: start: 20120118, end: 20120209
  7. NIKORANMART [Concomitant]
     Route: 048
     Dates: start: 20120120, end: 20120209
  8. PLAVIX [Suspect]
     Indication: ACUTE MYOCARDIAL INFARCTION
     Route: 048
     Dates: start: 20120118, end: 20120118
  9. LASIX [Concomitant]
     Route: 048
     Dates: start: 20120127, end: 20120209
  10. PROTON PUMP INHIBITORS [Concomitant]
  11. PLAVIX [Suspect]
     Route: 048
     Dates: start: 20120118, end: 20120118
  12. PLAVIX [Suspect]
     Route: 048
     Dates: start: 20120119, end: 20120131
  13. ALL OTHER THERAPEUTIC PRODUCTS [Concomitant]
     Indication: FASTING
     Dosage: DOSE: 100ML/HOURFREQUENCY: CONTINOUS
     Route: 042
     Dates: start: 20120118
  14. LIDOCAINE [Concomitant]
     Indication: VENTRICULAR TACHYCARDIA

REACTIONS (3)
  - COMA [None]
  - LIVER INJURY [None]
  - JAUNDICE [None]
